FAERS Safety Report 13756075 (Version 4)
Quarter: 2017Q3

REPORT INFORMATION
  Report Type: Report from Study
  Country: JP (occurrence: JP)
  Receive Date: 20170714
  Receipt Date: 20170822
  Transmission Date: 20171127
  Serious: Yes (Life-Threatening, Hospitalization)
  Sender: FDA-Public Use
  Company Number: JP-EISAI MEDICAL RESEARCH-EC-2017-029371

PATIENT
  Age: 47 Year
  Sex: Male
  Weight: 75 kg

DRUGS (9)
  1. LENVATINIB [Suspect]
     Active Substance: LENVATINIB
     Indication: MALIGNANT NEOPLASM OF THYMUS
     Route: 048
     Dates: start: 20170501, end: 20170508
  2. CYTOTEC [Concomitant]
     Active Substance: MISOPROSTOL
  3. NAUZELIN [Concomitant]
     Active Substance: DOMPERIDONE
  4. HIRUDOID [Concomitant]
     Active Substance: GLYCOSAMINOGLYCANS
  5. LENVATINIB [Suspect]
     Active Substance: LENVATINIB
     Route: 048
     Dates: start: 20170515, end: 20170529
  6. OXINORM [Concomitant]
     Active Substance: OXYCODONE HYDROCHLORIDE
  7. LOXOPROFEN [Concomitant]
     Active Substance: LOXOPROFEN
  8. LENVATINIB [Suspect]
     Active Substance: LENVATINIB
     Route: 048
     Dates: start: 20170607, end: 20170711
  9. OXYCONTIN [Concomitant]
     Active Substance: OXYCODONE HYDROCHLORIDE

REACTIONS (1)
  - Left ventricular dysfunction [Recovered/Resolved]

NARRATIVE: CASE EVENT DATE: 20170712
